FAERS Safety Report 6023831-3 (Version None)
Quarter: 2008Q4

REPORT INFORMATION
  Report Type: 
  Country: None (occurrence: None)
  Receive Date: 20081230
  Receipt Date: 20081215
  Transmission Date: 20090506
  Serious: Yes (Death)
  Sender: FDA-Public Use
  Company Number: US-PFIZER INC-2008153471

PATIENT
  Age: 51 Year
  Sex: Male

DRUGS (4)
  1. SERTRALINE HCL [Suspect]
  2. METHADONE HYDROCHLORIDE [Suspect]
  3. BUPROPION [Suspect]
  4. METHAMPHETAMINE [Suspect]

REACTIONS (2)
  - CARDIAC ARREST [None]
  - RESPIRATORY ARREST [None]
